FAERS Safety Report 10916058 (Version 1)
Quarter: 2015Q1

REPORT INFORMATION
  Report Type: Spontaneous
  Country: US (occurrence: None)
  Receive Date: 20150311
  Receipt Date: 20150311
  Transmission Date: 20150721
  Serious: Yes (Other)
  Sender: FDA-Public Use
  Company Number: None

PATIENT
  Age: 66 Year
  Sex: Female
  Weight: 57.15 kg

DRUGS (12)
  1. COMBIVENT RESPIMAT [Suspect]
     Active Substance: ALBUTEROL SULFATE\IPRATROPIUM BROMIDE
     Indication: ASTHMA
     Dosage: 1 PAFF BY MOUTH 20 YRS. AGO
     Route: 055
  2. LANTUS [Concomitant]
     Active Substance: INSULIN GLARGINE
  3. LASARTAN [Concomitant]
  4. VITAMIN D [Concomitant]
     Active Substance: CHOLECALCIFEROL
  5. MONTELUKAST [Concomitant]
     Active Substance: MONTELUKAST SODIUM
  6. SYMPLY SALINE [Concomitant]
  7. DIAZEPAM HCL [Concomitant]
  8. CELEXA [Concomitant]
     Active Substance: CITALOPRAM HYDROBROMIDE
  9. BUPROPION XL [Concomitant]
     Active Substance: BUPROPION
  10. NOVOLOG [Concomitant]
     Active Substance: INSULIN ASPART
  11. COMBIVENT [Concomitant]
     Active Substance: ALBUTEROL SULFATE\IPRATROPIUM BROMIDE
  12. GOODY ORANGE [Concomitant]

REACTIONS (3)
  - Cough [None]
  - Device physical property issue [None]
  - Incorrect dose administered by device [None]
